FAERS Safety Report 13244438 (Version 1)
Quarter: 2017Q1

REPORT INFORMATION
  Report Type: Spontaneous
  Country: US (occurrence: US)
  Receive Date: 20170217
  Receipt Date: 20170217
  Transmission Date: 20170428
  Serious: Yes (Hospitalization)
  Sender: FDA-Public Use
  Company Number: None

PATIENT
  Age: 78 Year
  Sex: Male
  Weight: 80.9 kg

DRUGS (2)
  1. SULFAMETHOXAZOLE/ TRIMETHOPRIM [Suspect]
     Active Substance: SULFAMETHOXAZOLE\TRIMETHOPRIM
     Indication: INFECTION PROPHYLAXIS
     Route: 048
     Dates: start: 20160328, end: 20170114
  2. CLINDAMYCIN. [Suspect]
     Active Substance: CLINDAMYCIN
     Indication: INFECTION PROPHYLAXIS
     Route: 048
     Dates: start: 20161114, end: 20161121

REACTIONS (5)
  - Megacolon [None]
  - Leukocytosis [None]
  - Clostridium difficile colitis [None]
  - Blood creatine increased [None]
  - Pneumatosis intestinalis [None]

NARRATIVE: CASE EVENT DATE: 20161228
